FAERS Safety Report 20213496 (Version 2)
Quarter: 2021Q4

REPORT INFORMATION
  Report Type: Spontaneous
  Country: CH (occurrence: CH)
  Receive Date: 20211221
  Receipt Date: 20211228
  Transmission Date: 20220303
  Serious: Yes (Hospitalization)
  Sender: FDA-Public Use
  Company Number: CH-TAKEDA-2021TEU010528

PATIENT
  Age: 69 Year
  Sex: Male
  Weight: 70 kg

DRUGS (11)
  1. CRESEMBA [Suspect]
     Active Substance: ISAVUCONAZONIUM SULFATE
     Indication: Mucormycosis
     Dosage: 200 MG (100 MG,2 IN 1 D)
     Route: 048
     Dates: start: 20210323, end: 20210518
  2. PANTOPRAZOLE [Suspect]
     Active Substance: PANTOPRAZOLE
     Dosage: 40 MG (40 MG,1-0-0-0)
     Route: 048
  3. ASPIRIN [Concomitant]
     Active Substance: ASPIRIN
     Dosage: 100 MILLIGRAM, (100 MG,1-0-0-0-0)
     Route: 048
     Dates: start: 20210607
  4. CLOPIDOGREL SANDOZ [CLOPIDOGREL BESYLATE] [Concomitant]
     Dosage: 75 MG,1-0-0-0
     Route: 048
     Dates: start: 20210607
  5. EZETIMIB ROSUVASTATIN MEPHA [Concomitant]
     Dosage: 10MG / 20MG (0-0-1-0)
     Route: 048
     Dates: start: 20210607
  6. EUTHYROX [Concomitant]
     Active Substance: LEVOTHYROXINE SODIUM
     Dosage: 50 MCG (50 MCG,1-0-0-0)
     Route: 048
     Dates: start: 20210607
  7. ZOLPIDEM TARTRATE [Concomitant]
     Active Substance: ZOLPIDEM TARTRATE
     Dosage: 10 MG (10 MG,0-0-0-1)
     Route: 048
     Dates: start: 20210607
  8. FOLIC ACID [Concomitant]
     Active Substance: FOLIC ACID
     Dosage: 5 MG (5 MG,1-0-0-0)
     Route: 048
     Dates: start: 20210607
  9. MABTHERA [Concomitant]
     Active Substance: RITUXIMAB
     Indication: Mantle cell lymphoma
     Dosage: UNK
     Dates: start: 202011
  10. MABTHERA [Concomitant]
     Active Substance: RITUXIMAB
     Dosage: UNK
     Dates: start: 20210607
  11. POTASSIUM [Concomitant]
     Active Substance: POTASSIUM
     Dosage: UNK

REACTIONS (4)
  - Hypomagnesaemia [Recovering/Resolving]
  - Hypocalcaemia [Recovered/Resolved]
  - Hypokalaemia [Recovered/Resolved]
  - Off label use [Unknown]

NARRATIVE: CASE EVENT DATE: 20210323
